FAERS Safety Report 10521703 (Version 1)
Quarter: 2014Q4

REPORT INFORMATION
  Report Type: Spontaneous
  Country: AT (occurrence: AT)
  Receive Date: 20141016
  Receipt Date: 20141016
  Transmission Date: 20150528
  Serious: Yes (Hospitalization)
  Sender: FDA-Public Use
  Company Number: AT-ROCHE-1472681

PATIENT
  Age: 44 Year
  Sex: Female

DRUGS (7)
  1. KADCYLA [Suspect]
     Active Substance: ADO-TRASTUZUMAB EMTANSINE
     Dosage: 4. CYCLE
     Route: 065
     Dates: start: 20140908, end: 20140908
  2. HERCEPTIN [Suspect]
     Active Substance: TRASTUZUMAB
     Indication: BREAST CANCER METASTATIC
     Route: 065
     Dates: start: 20121008, end: 20130725
  3. KADCYLA [Suspect]
     Active Substance: ADO-TRASTUZUMAB EMTANSINE
     Indication: BREAST CANCER METASTATIC
     Dosage: 3. CYCLE
     Route: 065
     Dates: start: 20140704, end: 20140704
  4. HERCEPTIN [Suspect]
     Active Substance: TRASTUZUMAB
     Route: 065
     Dates: start: 20140929
  5. DOCETAXEL. [Suspect]
     Active Substance: DOCETAXEL
     Indication: BREAST CANCER METASTATIC
     Route: 065
     Dates: start: 20121008, end: 20130122
  6. TAMOXIFEN [Concomitant]
     Active Substance: TAMOXIFEN
     Indication: ENDOCRINE DISORDER
     Route: 065
     Dates: start: 20130211, end: 20130725
  7. KADCYLA [Suspect]
     Active Substance: ADO-TRASTUZUMAB EMTANSINE
     Route: 065
     Dates: start: 20140523

REACTIONS (6)
  - Disease progression [Unknown]
  - Cardiac disorder [Unknown]
  - Colitis [Recovered/Resolved]
  - Deformity thorax [Unknown]
  - Pleural effusion [Unknown]
  - Metastases to spine [Unknown]

NARRATIVE: CASE EVENT DATE: 20140706
